FAERS Safety Report 7641530-9 (Version None)
Quarter: 2011Q3

REPORT INFORMATION
  Report Type: 
  Country: None (occurrence: None)
  Receive Date: 20110728
  Receipt Date: 20110725
  Transmission Date: 20111222
  Serious: Yes (Hospitalization)
  Sender: FDA-Public Use
  Company Number: CN-SANOFI-AVENTIS-2011SA047140

PATIENT
  Age: 45 Year
  Sex: Male
  Weight: 56 kg

DRUGS (2)
  1. LANTUS [Suspect]
     Indication: DIABETES MELLITUS
     Route: 058
     Dates: start: 20110201
  2. INSULIN NOVO [Concomitant]
     Indication: DIABETES MELLITUS
     Route: 058
     Dates: start: 20090101

REACTIONS (2)
  - SYNCOPE [None]
  - CHILLS [None]
